FAERS Safety Report 8820357 (Version 1)
Quarter: 2012Q4

REPORT INFORMATION
  Report Type: 
  Country: GB (occurrence: GB)
  Receive Date: 20121001
  Receipt Date: 20121001
  Transmission Date: 20130627
  Serious: Yes (Other)
  Sender: FDA-Public Use
  Company Number: GB-UCBSA-067767

PATIENT
  Age: 66 Year
  Sex: Female
  Weight: 53.9 kg

DRUGS (3)
  1. CIMZIA [Suspect]
     Indication: RHEUMATOID ARTHRITIS
     Dates: start: 20120702
  2. METHOTREXATE [Concomitant]
     Dates: start: 20120628, end: 20120912
  3. PERINDOPRIL ERBUMINE [Concomitant]
     Dates: start: 20120615, end: 20120910

REACTIONS (1)
  - Photosensitivity reaction [Unknown]
